FAERS Safety Report 8102288-2 (Version None)
Quarter: 2012Q1

REPORT INFORMATION
  Report Type: 
  Country: None (occurrence: None)
  Receive Date: 20120131
  Receipt Date: 20120131
  Transmission Date: 20120608
  Serious: Yes (Other)
  Sender: FDA-Public Use
  Company Number: None

PATIENT
  Age: 72 Year
  Sex: Female
  Weight: 47.6277 kg

DRUGS (1)
  1. BONIVA [Suspect]
     Indication: OSTEOPOROSIS PROPHYLAXIS
     Dosage: 1 PILL PER MONTH
     Dates: start: 20110101, end: 20111001

REACTIONS (8)
  - GROIN PAIN [None]
  - HEADACHE [None]
  - MYALGIA [None]
  - ARTHRALGIA [None]
  - PAIN [None]
  - BACK PAIN [None]
  - ABASIA [None]
  - INFLUENZA LIKE ILLNESS [None]
